FAERS Safety Report 9173268 (Version 1)
Quarter: 2013Q1

REPORT INFORMATION
  Report Type: Spontaneous
  Country: US (occurrence: None)
  Receive Date: 20130319
  Receipt Date: 20130319
  Transmission Date: 20140127
  Serious: Yes (Other)
  Sender: FDA-Public Use
  Company Number: None

PATIENT
  Age: 41 Year
  Sex: Female
  Weight: 74.84 kg

DRUGS (1)
  1. AZITHROMYCIN 250 [Suspect]
     Indication: SINUSITIS
     Dosage: 2 TABLETS DAILY FOR 1 DAY PO?1 TABLET DAILY FOR 4 DAYS PO
     Route: 048
     Dates: start: 20130215, end: 20130220

REACTIONS (1)
  - Atrial fibrillation [None]
